FAERS Safety Report 8851393 (Version 2)
Quarter: 2015Q3

REPORT INFORMATION
  Report Type: Report from Study
  Country: US (occurrence: US)
  Receive Date: 20121022
  Receipt Date: 20150812
  Transmission Date: 20151125
  Serious: Yes (Hospitalization)
  Sender: FDA-Public Use
  Company Number: US-ROCHE-1141576

PATIENT
  Age: 43 Year
  Sex: Female

DRUGS (18)
  1. TRICOR [Concomitant]
     Active Substance: FENOFIBRATE
     Route: 048
  2. INDERAL [Concomitant]
     Active Substance: PROPRANOLOL HYDROCHLORIDE
  3. ZOLOFT [Concomitant]
     Active Substance: SERTRALINE HYDROCHLORIDE
     Route: 048
  4. INSULIN [Concomitant]
     Active Substance: INSULIN NOS
  5. L DOPA [Concomitant]
     Active Substance: LEVODOPA
     Route: 065
  6. E-MYCIN [Concomitant]
     Active Substance: ERYTHROMYCIN
     Route: 065
  7. COMPAZINE [Concomitant]
     Active Substance: PROCHLORPERAZINE MALEATE
  8. TAGAMET [Concomitant]
     Active Substance: CIMETIDINE
     Route: 048
  9. LOPID [Concomitant]
     Active Substance: GEMFIBROZIL
     Route: 065
  10. NUTROPIN AQ [Suspect]
     Active Substance: SOMATROPIN
     Indication: GROWTH HORMONE DEFICIENCY
     Dosage: 12 CC
     Route: 058
  11. SYNTHROID [Concomitant]
     Active Substance: LEVOTHYROXINE SODIUM
     Route: 048
  12. COREG [Concomitant]
     Active Substance: CARVEDILOL
     Route: 048
  13. VITAMIN B COMPLEX [Concomitant]
     Active Substance: CYANOCOBALAMIN\DEXPANTHENOL\NIACINAMIDE\PYRIDOXINE HYDROCHLORIDE\RIBOFLAVIN 5^-PHOSPHATE SODIUM\THIAMINE HYDROCHLORIDE\VITAMIN B COMPLEX
  14. COZAAR [Concomitant]
     Active Substance: LOSARTAN POTASSIUM
     Route: 048
  15. DEMADEX [Concomitant]
     Active Substance: TORSEMIDE
     Route: 065
  16. ASPIRIN. [Concomitant]
     Active Substance: ASPIRIN
     Route: 048
  17. EPOGEN [Concomitant]
     Active Substance: ERYTHROPOIETIN
     Route: 058
  18. IMDUR [Concomitant]
     Active Substance: ISOSORBIDE MONONITRATE
     Route: 048

REACTIONS (11)
  - Dyspnoea [Unknown]
  - Back pain [Unknown]
  - Headache [Unknown]
  - Anaemia [Unknown]
  - Dizziness [Unknown]
  - Blood glucose fluctuation [Unknown]
  - Depression [Unknown]
  - Fluid retention [Unknown]
  - Renal impairment [Unknown]
  - Constipation [Unknown]
  - Myocardial ischaemia [Unknown]

NARRATIVE: CASE EVENT DATE: 199909
